FAERS Safety Report 23909341 (Version 1)
Quarter: 2024Q2

REPORT INFORMATION
  Report Type: Spontaneous
  Country: US (occurrence: None)
  Receive Date: 20240525
  Receipt Date: 20240525
  Transmission Date: 20240716
  Serious: Yes (Disabling)
  Sender: FDA-Public Use
  Company Number: None

PATIENT
  Age: 39 Year
  Sex: Female
  Weight: 51.3 kg

DRUGS (4)
  1. DAXXIFY [Suspect]
     Active Substance: DAXIBOTULINUMTOXIN A-LANM
     Indication: Therapeutic skin care topical
     Dosage: EVERY 12 WEEKS SUBCUTANEOUS?
     Route: 058
  2. MAG CITRATE [Concomitant]
  3. VITAMINS [Concomitant]
     Active Substance: VITAMINS
  4. ZYRTEC [Concomitant]
     Active Substance: CETIRIZINE HYDROCHLORIDE

REACTIONS (4)
  - Migraine [None]
  - Brain fog [None]
  - Visual impairment [None]
  - Anxiety [None]

NARRATIVE: CASE EVENT DATE: 20240224
